FAERS Safety Report 5093279-7 (Version None)
Quarter: 2006Q3

REPORT INFORMATION
  Report Type: 
  Country: None (occurrence: None)
  Receive Date: 20060829
  Receipt Date: 20060829
  Transmission Date: 20061208
  Serious: Yes (Hospitalization)
  Sender: FDA-Public Use
  Company Number: None

PATIENT
  Sex: Male
  Weight: 97.9 kg

DRUGS (4)
  1. THIOTHIXENE HCL [Suspect]
     Indication: SCHIZOPHRENIA
     Dosage: 15 MG DAILY PO
     Route: 048
  2. LITHIUM [Concomitant]
  3. BUPROPION HCL [Concomitant]
  4. CITALOPRAM HYDROBROMIDE [Concomitant]

REACTIONS (8)
  - ANXIETY [None]
  - DISTURBANCE IN ATTENTION [None]
  - FORMICATION [None]
  - HALLUCINATION, VISUAL [None]
  - IRRITABILITY [None]
  - MUSCULOSKELETAL STIFFNESS [None]
  - PARANOIA [None]
  - RESTLESSNESS [None]
